FAERS Safety Report 9271405 (Version 2)
Quarter: 2013Q3

REPORT INFORMATION
  Report Type: Report from Study
  Country: AU (occurrence: AU)
  Receive Date: 20130506
  Receipt Date: 20130731
  Transmission Date: 20140515
  Serious: Yes (Disabling)
  Sender: FDA-Public Use
  Company Number: PHHY2013AU035110

PATIENT
  Age: 63 Year
  Sex: Female
  Weight: 68 kg

DRUGS (5)
  1. ACLASTA [Suspect]
     Indication: OSTEOPOROSIS
     Dosage: 5 MG/100 ML
     Route: 042
     Dates: start: 20120914
  2. CALTRATE + VITAMIN D [Concomitant]
     Indication: OSTEOPOROSIS
     Dosage: 1 DF, UNK
     Route: 048
     Dates: start: 1990
  3. ZANIDIP [Concomitant]
     Indication: HYPERTENSION
     Dosage: 1 DF, UNK
     Route: 048
     Dates: start: 2009
  4. NOVASONE [Concomitant]
     Indication: PSORIASIS
     Dosage: APPLY DAILY
     Route: 061
     Dates: start: 1998
  5. PANADOL OSTEO [Concomitant]
     Indication: ARTHRITIS
     Dosage: 2 DF, UNK
     Route: 048
     Dates: start: 2012

REACTIONS (3)
  - Mastication disorder [Recovered/Resolved]
  - Toothache [Recovered/Resolved]
  - Eating disorder [Recovered/Resolved]
